FAERS Safety Report 23301640 (Version 1)
Quarter: 2023Q4

REPORT INFORMATION
  Report Type: Report from Study
  Country: BD (occurrence: None)
  Receive Date: 20231215
  Receipt Date: 20231215
  Transmission Date: 20240110
  Serious: Yes (Death)
  Sender: FDA-Public Use
  Company Number: 2023A282066

PATIENT
  Age: 24169 Day
  Sex: Female
  Weight: 22.7 kg

DRUGS (1)
  1. FASLODEX [Suspect]
     Active Substance: FULVESTRANT
     Indication: Breast cancer female
     Dosage: 250 MG/5 ML
     Route: 030
     Dates: start: 20230527, end: 20231004

REACTIONS (1)
  - Death [Fatal]

NARRATIVE: CASE EVENT DATE: 20231203
